FAERS Safety Report 8315288-4 (Version None)
Quarter: 2012Q2

REPORT INFORMATION
  Report Type: 
  Country: None (occurrence: None)
  Receive Date: 20120426
  Receipt Date: 20120420
  Transmission Date: 20120825
  Serious: Yes (Hospitalization)
  Sender: FDA-Public Use
  Company Number: BR-PFIZER INC-2012100060

PATIENT
  Age: 71 Year
  Sex: Female

DRUGS (6)
  1. OLMESARTAN MEDOXOMIL AND HYDROCHLOROTHIZIDE [Suspect]
     Indication: HYPERTENSION
     Dosage: [OLMESARTAN MEDOXOMIL 40MG] / [HYDROCHLOROTHIAZIDE 12.5MG], DAILY
     Route: 048
     Dates: start: 20090825
  2. ASPIRIN [Concomitant]
     Dosage: UNK
  3. METOPROLOL SUCCINATE [Concomitant]
     Dosage: UNK
  4. CLOPIDOGREL [Concomitant]
     Dosage: 75 MG, UNK
  5. NORVASC [Suspect]
     Indication: HYPERTENSION
     Dosage: 5MG, DAILY
     Route: 048
  6. SIMVASTATIN [Concomitant]
     Indication: BLOOD CHOLESTEROL
     Dosage: UNK

REACTIONS (1)
  - ANGIOPLASTY [None]
